FAERS Safety Report 24192314 (Version 1)
Quarter: 2024Q3

REPORT INFORMATION
  Report Type: Report from Study
  Country: US (occurrence: US)
  Receive Date: 20240809
  Receipt Date: 20240809
  Transmission Date: 20241017
  Serious: Yes (Other)
  Sender: NOVARTIS
  Company Number: US-002147023-NVSC2024US160490

PATIENT
  Age: 51 Year
  Sex: Female

DRUGS (1)
  1. MAYZENT [Suspect]
     Active Substance: SIPONIMOD
     Indication: Multiple sclerosis
     Dosage: 2 MG, QD
     Route: 048
     Dates: start: 20191001, end: 20240508

REACTIONS (4)
  - Rash [Unknown]
  - Dizziness [Unknown]
  - Malaise [Unknown]
  - Product availability issue [Unknown]

NARRATIVE: CASE EVENT DATE: 20240717
